FAERS Safety Report 15896863 (Version 1)
Quarter: 2019Q1

REPORT INFORMATION
  Report Type: Spontaneous
  Country: IT (occurrence: IT)
  Receive Date: 20190131
  Receipt Date: 20190131
  Transmission Date: 20190417
  Serious: Yes (Disabling)
  Sender: FDA-Public Use
  Company Number: IT-BAYER-200512402GDS

PATIENT
  Age: 83 Year
  Sex: Male

DRUGS (1)
  1. CARDIOASPIRIN [Suspect]
     Active Substance: ASPIRIN
     Indication: CEREBROVASCULAR DISORDER
     Dosage: 10 MG, QD
     Route: 048
     Dates: start: 20040101

REACTIONS (4)
  - Haemorrhagic stroke [Not Recovered/Not Resolved]
  - Blindness [Not Recovered/Not Resolved]
  - Asthenia [Not Recovered/Not Resolved]
  - Hemiplegia [Unknown]

NARRATIVE: CASE EVENT DATE: 20050711
